FAERS Safety Report 8301986 (Version 2)
Quarter: 2012Q4

REPORT INFORMATION
  Report Type: 
  Country: US (occurrence: US)
  Receive Date: 20111220
  Receipt Date: 20121220
  Transmission Date: 20130627
  Serious: No
  Sender: FDA-Public Use
  Company Number: US-GLAXOSMITHKLINE-A0942862A

PATIENT
  Age: 77 Year
  Sex: Female

DRUGS (4)
  1. SORIATANE [Suspect]
     Indication: LICHEN SCLEROSUS
     Dosage: 25MG Per day
     Route: 048
     Dates: start: 201105
  2. SIMVASTATIN [Concomitant]
  3. CALCITRIOL [Concomitant]
  4. VITAMIN D SUPPLEMENT [Concomitant]

REACTIONS (16)
  - Rash [Unknown]
  - Erythema [Unknown]
  - Skin exfoliation [Unknown]
  - Nail disorder [Not Recovered/Not Resolved]
  - Nail disorder [Not Recovered/Not Resolved]
  - Nail disorder [Not Recovered/Not Resolved]
  - Pain in extremity [Unknown]
  - Nail disorder [Unknown]
  - Hyperaesthesia [Unknown]
  - Pruritus [Unknown]
  - Pruritus [Unknown]
  - Sleep disorder [Unknown]
  - Fatigue [Unknown]
  - Ill-defined disorder [Unknown]
  - Contusion [Unknown]
  - Product quality issue [Unknown]
